FAERS Safety Report 7587479-1 (Version None)
Quarter: 2011Q3

REPORT INFORMATION
  Report Type: 
  Country: None (occurrence: None)
  Receive Date: 20110704
  Receipt Date: 20110624
  Transmission Date: 20111222
  Serious: No
  Sender: FDA-Public Use
  Company Number: US-BIOGENIDEC-2011BI023641

PATIENT
  Sex: Female

DRUGS (1)
  1. AVONEX [Suspect]
     Indication: MULTIPLE SCLEROSIS
     Route: 030
     Dates: start: 20080101

REACTIONS (12)
  - SNEEZING [None]
  - SCOLIOSIS [None]
  - GLAUCOMA [None]
  - NECK PAIN [None]
  - DRY MOUTH [None]
  - TONGUE DISORDER [None]
  - FALL [None]
  - BALANCE DISORDER [None]
  - HEADACHE [None]
  - NAUSEA [None]
  - ARTHRITIS [None]
  - PARAESTHESIA [None]
